FAERS Safety Report 4613891-6 (Version None)
Quarter: 2005Q1

REPORT INFORMATION
  Report Type: 
  Country: None (occurrence: None)
  Receive Date: 20050321
  Receipt Date: 20050314
  Transmission Date: 20050727
  Serious: Yes (Other)
  Sender: FDA-Public Use
  Company Number: PHEH2005US03112

PATIENT
  Age: 76 Year
  Sex: Male

DRUGS (1)
  1. TRILEPTAL [Suspect]
     Indication: CONVULSION
     Dosage: 600 MG, BID
     Route: 048
     Dates: start: 20050224, end: 20050311

REACTIONS (6)
  - AGGRESSION [None]
  - CONSTIPATION [None]
  - FATIGUE [None]
  - HALLUCINATION, VISUAL [None]
  - MOOD SWINGS [None]
  - SOMNOLENCE [None]
